FAERS Safety Report 9204654 (Version 2)
Quarter: 2013Q4

REPORT INFORMATION
  Report Type: Spontaneous
  Country: US (occurrence: US)
  Receive Date: 20130402
  Receipt Date: 20131101
  Transmission Date: 20140711
  Serious: Yes (Hospitalization, Disabling, Other)
  Sender: FDA-Public Use
  Company Number: US-BAYER-2013-039177

PATIENT
  Age: 26 Year
  Sex: Female
  Weight: 116.1 kg

DRUGS (8)
  1. OCELLA [Suspect]
  2. ACETAZOLAMIDE [Concomitant]
     Dosage: 250 MG, QD
  3. DIVALPROEX [Concomitant]
     Dosage: 500 MG, 2 TABLETS EVERY NIGHT AT BEDTIME
  4. SERTRALINE [Concomitant]
     Dosage: 50 MG, ? TABLET BY MOUTH DAILY FOR 1 WEEK, THEN INCREASE TO 1
  5. HYDROCODONE [Concomitant]
     Dosage: 7.5-200 MG, EVERY 4 HOURS
     Route: 048
  6. ONDANSETRON [Concomitant]
     Dosage: 4 MG, BID
     Route: 048
  7. YAZ [Suspect]
  8. YASMIN [Suspect]

REACTIONS (7)
  - Gallbladder disorder [None]
  - Cholecystitis chronic [None]
  - Injury [None]
  - Pain [None]
  - Deformity [None]
  - Anxiety [None]
  - Anhedonia [None]
